FAERS Safety Report 6069380-8 (Version None)
Quarter: 2009Q1

REPORT INFORMATION
  Report Type: 
  Country: None (occurrence: None)
  Receive Date: 20090206
  Receipt Date: 20090127
  Transmission Date: 20090719
  Serious: Yes (Hospitalization)
  Sender: FDA-Public Use
  Company Number: CZ-ELI_LILLY_AND_COMPANY-CZ200901005171

PATIENT
  Age: 37 Year
  Sex: Male
  Weight: 96 kg

DRUGS (4)
  1. ZYPREXA [Suspect]
     Indication: SCHIZOPHRENIA
     Dosage: 10 MG, UNK
     Route: 065
  2. ZOTEPINE [Concomitant]
     Dosage: 150 MG, DAILY (1/D)
     Route: 065
  3. ZOTEPINE [Concomitant]
     Dosage: 100 MG, DAILY (1/D)
     Route: 065
  4. LEVOMEPROMAZINE [Concomitant]
     Dosage: 25 MG, DAILY (1/D)
     Route: 065

REACTIONS (2)
  - DEEP VEIN THROMBOSIS [None]
  - WEIGHT INCREASED [None]
